FAERS Safety Report 16925718 (Version 1)
Quarter: 2019Q4

REPORT INFORMATION
  Report Type: Spontaneous
  Country: US (occurrence: US)
  Receive Date: 20190823
  Receipt Date: 20190823
  Transmission Date: 20200122
  Serious: No
  Sender: FDA-Public Use
  Company Number: None

PATIENT
  Age: 56 Year
  Sex: Female

DRUGS (1)
  1. REMICADE [Suspect]
     Active Substance: INFLIXIMAB
     Indication: PSORIATIC ARTHROPATHY
     Dosage: ?          OTHER FREQUENCY:EVERY 6 WEEKS;?
     Route: 042
     Dates: start: 20181018

REACTIONS (6)
  - Uveitis [None]
  - Pruritus [None]
  - Drug ineffective [None]
  - Inflammation [None]
  - Concomitant disease aggravated [None]
  - Peripheral swelling [None]

NARRATIVE: CASE EVENT DATE: 20190418
